FAERS Safety Report 16414322 (Version 2)
Quarter: 2019Q2

REPORT INFORMATION
  Report Type: Spontaneous
  Country: CN (occurrence: CN)
  Receive Date: 20190611
  Receipt Date: 20190618
  Transmission Date: 20190711
  Serious: Yes (Hospitalization, Other)
  Sender: FDA-Public Use
  Company Number: CN-ASTRAZENECA-2019SE82766

PATIENT
  Age: 80 Year
  Sex: Male

DRUGS (2)
  1. ONGLYZA [Suspect]
     Active Substance: SAXAGLIPTIN HYDROCHLORIDE
     Indication: DIABETES MELLITUS
     Route: 048
  2. LIPITOR [Concomitant]
     Active Substance: ATORVASTATIN CALCIUM
     Indication: HYPERLIPIDAEMIA
     Dosage: HALF AN TABLET EVERY DAY
     Route: 048

REACTIONS (11)
  - Dizziness [Recovered/Resolved]
  - Wheezing [Recovering/Resolving]
  - Cardiovascular disorder [Unknown]
  - Vision blurred [Unknown]
  - Loss of consciousness [Recovered/Resolved]
  - Cardiac discomfort [Recovered/Resolved]
  - Bradycardia [Recovered/Resolved]
  - Syncope [Recovered/Resolved]
  - Blood pressure decreased [Recovering/Resolving]
  - Fall [Recovered/Resolved]
  - Vasoconstriction [Unknown]

NARRATIVE: CASE EVENT DATE: 2018
